FAERS Safety Report 8355998-6 (Version None)
Quarter: 2012Q2

REPORT INFORMATION
  Report Type: 
  Country: None (occurrence: None)
  Receive Date: 20120514
  Receipt Date: 20120508
  Transmission Date: 20120825
  Serious: No
  Sender: FDA-Public Use
  Company Number: US-PFIZER INC-2012096107

PATIENT
  Sex: Female

DRUGS (4)
  1. CODEINE SULFATE [Suspect]
     Dosage: UNK
  2. TRAZODONE HYDROCHLORIDE [Suspect]
     Dosage: UNK
  3. TETRACYCLINE HYDROCHLORIDE [Suspect]
     Dosage: UNK
  4. PENICILLIN G POTASSIUM [Suspect]
     Dosage: UNK

REACTIONS (1)
  - DRUG HYPERSENSITIVITY [None]
